FAERS Safety Report 7808698-2 (Version None)
Quarter: 2011Q4

REPORT INFORMATION
  Report Type: 
  Country: None (occurrence: None)
  Receive Date: 20111006
  Receipt Date: 20110927
  Transmission Date: 20120403
  Serious: Yes (Hospitalization)
  Sender: FDA-Public Use
  Company Number: 2011SP041415

PATIENT
  Age: 84 Year
  Sex: Female

DRUGS (5)
  1. PERINDOPRIL ERBUMINE [Concomitant]
  2. MIRTAZAPINE [Suspect]
     Dosage: 15 MG; QD; PO
     Route: 048
     Dates: start: 20101001, end: 20110401
  3. HALDOL [Suspect]
     Dosage: 5 GTT; BID; PO
     Route: 048
     Dates: start: 20101001, end: 20110401
  4. RENITEC (ENALAPRIL) [Suspect]
     Dosage: 5 MG; QD; PO, 20 MG; QD; PO, 10 MG; QD; PO
     Route: 048
     Dates: start: 20101001, end: 20110515
  5. RENITEC (ENALAPRIL) [Suspect]
     Dosage: 5 MG; QD; PO, 20 MG; QD; PO, 10 MG; QD; PO
     Route: 048
     Dates: start: 20110516, end: 20110526

REACTIONS (5)
  - HYPONATRAEMIA [None]
  - ABNORMAL BEHAVIOUR [None]
  - SOMNOLENCE [None]
  - AGGRESSION [None]
  - PSYCHOMOTOR HYPERACTIVITY [None]
